FAERS Safety Report 8923466 (Version 1)
Quarter: 2012Q4

REPORT INFORMATION
  Report Type: 
  Country: US (occurrence: US)
  Receive Date: 20121123
  Receipt Date: 20121123
  Transmission Date: 20130627
  Serious: Yes (Hospitalization)
  Sender: FDA-Public Use
  Company Number: US-PFIZER INC-2012291592

PATIENT
  Age: 19 Year
  Sex: Male

DRUGS (1)
  1. RAPAMUNE [Suspect]
     Indication: LYMPHANGIOMATOSIS
     Dosage: 3mg,  2x/day  (Three 1mg tablets)

REACTIONS (2)
  - Surgery [Unknown]
  - Off label use [Unknown]
